FAERS Safety Report 5362505-9 (Version None)
Quarter: 2007Q2

REPORT INFORMATION
  Report Type: 
  Country: None (occurrence: None)
  Receive Date: 20070619
  Receipt Date: 20070604
  Transmission Date: 20071010
  Serious: Yes (Other)
  Sender: FDA-Public Use
  Company Number: US-SHR-US-2007-018410

PATIENT
  Age: 61 Year
  Sex: Female

DRUGS (8)
  1. BETASERON [Suspect]
     Indication: SECONDARY PROGRESSIVE MULTIPLE SCLEROSIS
     Route: 058
     Dates: end: 19950101
  2. BACLOFEN [Concomitant]
     Dosage: 30 MG, 3X/DAY
     Dates: start: 19880401
  3. OXYBUTON [Concomitant]
     Dosage: 15 MG, 2X/DAY
     Dates: start: 19880601
  4. PROZAC [Concomitant]
     Dosage: 400 MG/D, UNK
     Dates: start: 19920701
  5. FIBERCON [Concomitant]
     Dosage: 2 TAB(S), 2X/DAY
  6. ASPIRIN [Concomitant]
     Dosage: 1 UNK, 1X/DAY
  7. VITAMIN CAP [Concomitant]
     Dosage: 1 UNK, 1X/DAY
  8. FLEET MINERAL OIL ENEMA [Concomitant]
     Dosage: UNK, 2X/WEEK

REACTIONS (2)
  - INTESTINAL FUNCTIONAL DISORDER [None]
  - PARALYSIS [None]
